FAERS Safety Report 7641848-X (Version None)
Quarter: 2011Q3

REPORT INFORMATION
  Report Type: 
  Country: None (occurrence: None)
  Receive Date: 20110728
  Receipt Date: 20110721
  Transmission Date: 20111222
  Serious: Yes (Hospitalization)
  Sender: FDA-Public Use
  Company Number: US-JNJFOC-20110709589

PATIENT
  Sex: Female

DRUGS (2)
  1. INVEGA SUSTENNA [Suspect]
     Indication: BIPOLAR DISORDER
     Route: 030
     Dates: start: 20110707, end: 20110714
  2. INVEGA SUSTENNA [Suspect]
     Route: 030
     Dates: start: 20110714

REACTIONS (3)
  - RESTLESSNESS [None]
  - DRUG ADMINISTERED AT INAPPROPRIATE SITE [None]
  - PARANOIA [None]
